FAERS Safety Report 9730485 (Version 1)
Quarter: 2013Q4

REPORT INFORMATION
  Report Type: Spontaneous
  Country: EC (occurrence: EC)
  Receive Date: 20131202
  Receipt Date: 20131202
  Transmission Date: 20140711
  Serious: Yes (Other)
  Sender: FDA-Public Use
  Company Number: EC-PFIZER INC-2013340248

PATIENT
  Age: 88 Year
  Sex: Female

DRUGS (2)
  1. LIPITOR [Suspect]
     Dosage: 40 MG, 1X/DAY
     Route: 048
     Dates: start: 201302, end: 201311
  2. CARDURA [Concomitant]
     Dosage: 2 MG, UNK
     Route: 048

REACTIONS (3)
  - Asphyxia [Unknown]
  - Cardiac disorder [Unknown]
  - Gastritis [Unknown]
